FAERS Safety Report 8321073 (Version 10)
Quarter: 2013Q4

REPORT INFORMATION
  Report Type: Spontaneous
  Country: GB (occurrence: GB)
  Receive Date: 20120104
  Receipt Date: 20131216
  Transmission Date: 20140711
  Serious: Yes (Other)
  Sender: FDA-Public Use
  Company Number: PHFR2011GB006932

PATIENT
  Age: 32 Year
  Sex: Male

DRUGS (10)
  1. CLOZARIL [Suspect]
     Indication: SCHIZOPHRENIA
     Dosage: UNK
     Route: 048
     Dates: start: 20020819
  2. CLOZARIL [Suspect]
     Dosage: 750 MG, QD
     Route: 048
  3. CLOZARIL [Suspect]
     Dosage: 650 MG, QD
     Route: 048
  4. CLOZARIL [Suspect]
     Dosage: 600 MG, UNK
     Route: 048
  5. CLOZARIL [Suspect]
     Dosage: 500 MG, QD
  6. CLOZARIL [Suspect]
     Dosage: 50 MG, UNK
  7. VALPROATE SODIUM [Concomitant]
     Dosage: 200 MG, UNK
     Route: 048
     Dates: start: 20111130
  8. HYOSCINE HYDROBROMIDE [Concomitant]
     Dosage: 300 MG, UNK
     Route: 048
  9. HYOSCINE HYDROBROMIDE [Concomitant]
     Dosage: 600 UG
  10. LANZOPRAZOL [Concomitant]
     Indication: GASTRITIS
     Dosage: 30 MG, UNK
     Route: 048

REACTIONS (13)
  - Feeling abnormal [Recovered/Resolved]
  - Panic attack [Recovered/Resolved]
  - Hyperhidrosis [Recovered/Resolved]
  - Anxiety [Recovered/Resolved]
  - Restlessness [Recovered/Resolved]
  - Haematemesis [Recovered/Resolved]
  - Palpitations [Recovering/Resolving]
  - Lethargy [Recovering/Resolving]
  - Fatigue [Recovering/Resolving]
  - Confusional state [Recovered/Resolved]
  - Dizziness [Recovering/Resolving]
  - Heart rate increased [Recovered/Resolved]
  - Antipsychotic drug level increased [Recovered/Resolved]
